FAERS Safety Report 25490905 (Version 1)
Quarter: 2025Q2

REPORT INFORMATION
  Report Type: Spontaneous
  Country: JP (occurrence: JP)
  Receive Date: 20250628
  Receipt Date: 20250628
  Transmission Date: 20250716
  Serious: Yes (Other)
  Sender: NOVITIUM PHARMA
  Company Number: JP-NOVITIUMPHARMA-2025JPNVP01458

PATIENT
  Age: 26 Year
  Sex: Female

DRUGS (1)
  1. LACOSAMIDE [Suspect]
     Active Substance: LACOSAMIDE
     Indication: Product used for unknown indication
     Route: 048

REACTIONS (3)
  - Electrocardiogram QRS complex prolonged [Unknown]
  - Toxicity to various agents [Unknown]
  - Overdose [Unknown]
